FAERS Safety Report 17050541 (Version 3)
Quarter: 2020Q1

REPORT INFORMATION
  Report Type: Spontaneous
  Country: MX (occurrence: MX)
  Receive Date: 20191119
  Receipt Date: 20200106
  Transmission Date: 20200409
  Serious: Yes (Death, Hospitalization)
  Sender: FDA-Public Use
  Company Number: MX-BIOMARINAP-MX-2019-126975

PATIENT
  Age: 6 Year
  Sex: Male
  Weight: 14 kg

DRUGS (1)
  1. VIMIZIM [Suspect]
     Active Substance: ELOSULFASE ALFA
     Indication: MUCOPOLYSACCHARIDOSIS IV
     Dosage: 2 MILLIGRAM/KILOGRAM, QW
     Route: 042
     Dates: start: 20181008

REACTIONS (6)
  - Abdominal pain [Recovered/Resolved]
  - Fluid overload [Fatal]
  - Vomiting [Recovered/Resolved]
  - Respiratory failure [Unknown]
  - Treatment noncompliance [Unknown]
  - Fluid retention [Unknown]
